FAERS Safety Report 10837357 (Version 3)
Quarter: 2015Q4

REPORT INFORMATION
  Report Type: Spontaneous
  Country: US (occurrence: US)
  Receive Date: 20150219
  Receipt Date: 20151105
  Transmission Date: 20160304
  Serious: Yes (Hospitalization, Other)
  Sender: FDA-Public Use
  Company Number: US-GLAXOSMITHKLINE-US2015GSK022391

PATIENT
  Age: 68 Year
  Sex: Female

DRUGS (1)
  1. ADVAIR DISKUS [Suspect]
     Active Substance: FLUTICASONE PROPIONATE\SALMETEROL XINAFOATE
     Indication: CHRONIC OBSTRUCTIVE PULMONARY DISEASE
     Dosage: UNK, BID
     Dates: start: 2007

REACTIONS (8)
  - Bladder neoplasm surgery [Recovering/Resolving]
  - Hospitalisation [Recovering/Resolving]
  - Malaise [Recovering/Resolving]
  - Bladder cancer [Recovering/Resolving]
  - Rehabilitation therapy [Recovering/Resolving]
  - Pulmonary embolism [Unknown]
  - Dyspnoea [Unknown]
  - Post procedural complication [Unknown]

NARRATIVE: CASE EVENT DATE: 201409
